FAERS Safety Report 6717415-9 (Version None)
Quarter: 2010Q2

REPORT INFORMATION
  Report Type: 
  Country: None (occurrence: None)
  Receive Date: 20100510
  Receipt Date: 20100506
  Transmission Date: 20101027
  Serious: Yes (Hospitalization)
  Sender: FDA-Public Use
  Company Number: US-ROCHE-589352

PATIENT
  Sex: Female
  Weight: 72.7 kg

DRUGS (6)
  1. TOCILIZUMAB [Suspect]
     Indication: RHEUMATOID ARTHRITIS
     Dosage: REPORTED LAST DOSE PRIOR TO SAE: 18 JULY  2008.
     Route: 042
     Dates: start: 20060823
  2. TOCILIZUMAB [Suspect]
     Dosage: TOCILIZUMAB WAS TEMPORARILY INTERRUPTED.
     Route: 042
  3. TOCILIZUMAB [Suspect]
     Route: 042
  4. FOLIC ACID [Concomitant]
     Dates: start: 20061101
  5. ADVIL [Concomitant]
     Dates: start: 20040101
  6. CALCIUM [Concomitant]
     Dosage: DURG NAME REPORTED AS CALCIUM+D
     Dates: start: 20000101

REACTIONS (5)
  - AORTIC ARTERIOSCLEROSIS [None]
  - ATRIOVENTRICULAR BLOCK FIRST DEGREE [None]
  - CHRONIC OBSTRUCTIVE PULMONARY DISEASE [None]
  - HYPERTENSION [None]
  - PULMONARY EMBOLISM [None]
